FAERS Safety Report 5006710-X (Version None)
Quarter: 2006Q2

REPORT INFORMATION
  Report Type: 
  Country: None (occurrence: None)
  Receive Date: 20060519
  Receipt Date: 20060515
  Transmission Date: 20061013
  Serious: Yes (Death, Life-Threatening, Other)
  Sender: FDA-Public Use
  Company Number: FR-BRISTOL-MYERS SQUIBB COMPANY-13376496

PATIENT
  Age: 40 Year
  Sex: Female

DRUGS (19)
  1. BLEOMYCIN SULFATE [Suspect]
     Indication: B-CELL LYMPHOMA
     Route: 042
     Dates: start: 20060113, end: 20060131
  2. ENDOXAN [Suspect]
     Indication: B-CELL LYMPHOMA
     Route: 042
     Dates: start: 20060114, end: 20060128
  3. DOXORUBICIN HCL [Suspect]
     Indication: B-CELL LYMPHOMA
     Route: 042
     Dates: start: 20060115, end: 20060129
  4. METHOTREXATE [Suspect]
     Indication: B-CELL LYMPHOMA
     Route: 037
     Dates: start: 20060112, end: 20060127
  5. MABTHERA [Suspect]
     Indication: B-CELL LYMPHOMA
     Route: 042
     Dates: start: 20060114, end: 20060128
  6. ELDISINE [Suspect]
     Indication: B-CELL LYMPHOMA
     Route: 042
     Dates: start: 20060113, end: 20060131
  7. SPECIAFOLDINE [Concomitant]
     Dates: start: 20060127
  8. BACTRIM DS [Concomitant]
     Dates: start: 20060127
  9. OROKEN [Concomitant]
     Dates: start: 20060101
  10. CIFLOX [Concomitant]
     Dates: start: 20060101
  11. SOLU-MEDROL [Concomitant]
     Dates: start: 20060112
  12. ROCEPHIN [Concomitant]
     Dates: start: 20060101
  13. MINISINTROM [Concomitant]
     Dates: start: 20060126
  14. METHOTREXATE [Concomitant]
     Route: 042
     Dates: start: 20060127, end: 20060127
  15. TRIFLUCAN [Concomitant]
     Dates: start: 20060127
  16. VALACYCLOVIR HCL [Concomitant]
     Dates: start: 20060127
  17. MOPRAL [Concomitant]
     Route: 048
     Dates: start: 20060127
  18. GRANOCYTE [Concomitant]
     Dates: start: 20060127
  19. ALLOPURINOL [Concomitant]
     Dates: start: 20060127

REACTIONS (16)
  - ACUTE RESPIRATORY DISTRESS SYNDROME [None]
  - ANAEMIA [None]
  - ASTHENIA [None]
  - BONE MARROW FAILURE [None]
  - CARDIAC ARREST [None]
  - COAGULOPATHY [None]
  - DEEP VEIN THROMBOSIS [None]
  - GASTROENTERITIS [None]
  - HYPOVOLAEMIC SHOCK [None]
  - MUCOSAL INFLAMMATION [None]
  - NEUTROPENIA [None]
  - PSEUDOMONAS INFECTION [None]
  - RENAL FAILURE [None]
  - RENAL IMPAIRMENT [None]
  - SEPSIS [None]
  - THROMBOCYTOPENIA [None]
